FAERS Safety Report 21350541 (Version 1)
Quarter: 2022Q3

REPORT INFORMATION
  Report Type: Spontaneous
  Country: US (occurrence: US)
  Receive Date: 20220919
  Receipt Date: 20220919
  Transmission Date: 20221026
  Serious: No
  Sender: FDA-Public Use
  Company Number: US-LUPIN PHARMACEUTICALS INC.-2022-11149

PATIENT
  Age: 25 Year
  Sex: Female

DRUGS (4)
  1. DOXYCYCLINE [Suspect]
     Active Substance: DOXYCYCLINE
     Indication: Malaria
     Dosage: UNK
     Route: 048
  2. DOXYCYCLINE [Suspect]
     Active Substance: DOXYCYCLINE
     Indication: Plasmodium falciparum infection
  3. ARTESUNATE [Concomitant]
     Active Substance: ARTESUNATE
     Indication: Malaria
     Dosage: UNK
     Route: 042
  4. ARTESUNATE [Concomitant]
     Active Substance: ARTESUNATE
     Indication: Plasmodium falciparum infection

REACTIONS (1)
  - Off label use [Unknown]
